FAERS Safety Report 14113799 (Version 1)
Quarter: 2017Q4

REPORT INFORMATION
  Report Type: Spontaneous
  Country: US (occurrence: US)
  Receive Date: 20171023
  Receipt Date: 20171023
  Transmission Date: 20180321
  Serious: No
  Sender: FDA-Public Use
  Company Number: US-B.I. PHARMACEUTICALS,INC./RIDGEFIELD-2017-BI-056079

PATIENT
  Age: 75 Year
  Sex: Male

DRUGS (10)
  1. SERTRALIN HCL [Concomitant]
     Active Substance: SERTRALINE HYDROCHLORIDE
     Indication: PRODUCT USED FOR UNKNOWN INDICATION
     Dosage: ONCE DAILY;  FORM STRENGTH: 100MG; FORMULATION: TABLET
     Route: 048
  2. ASPIRIN. [Concomitant]
     Active Substance: ASPIRIN
     Indication: PRODUCT USED FOR UNKNOWN INDICATION
     Dosage: ONCE DAILY;  FORM STRENGTH: 81MG; FORMULATION: TABLET
     Route: 048
  3. JANUVIA [Concomitant]
     Active Substance: SITAGLIPTIN PHOSPHATE
     Indication: DIABETES MELLITUS
     Dosage: ONCE DAILY;  FORM STRENGTH: 100MG; FORMULATION: TABLET
     Route: 048
  4. CLOPIDOGREL [Concomitant]
     Active Substance: CLOPIDOGREL BISULFATE
     Indication: CORONARY ARTERIAL STENT INSERTION
     Dosage: ONCE DAILY;  FORM STRENGTH: 75MG; FORMULATION: TABLET
     Route: 048
  5. ATORVASTATIN [Concomitant]
     Active Substance: ATORVASTATIN
     Indication: PRODUCT USED FOR UNKNOWN INDICATION
     Dosage: ONCE DAILY;  FORM STRENGTH: 5MG; FORMULATION: SUPPOSITORY
     Route: 048
  6. LOSARTIN POTASSIUM [Concomitant]
     Indication: PRODUCT USED FOR UNKNOWN INDICATION
     Dosage: ONCE DAILY;  FORM STRENGTH: 100MG; FORMULATION: TABLET
     Route: 048
  7. VITAMIN B12 [Concomitant]
     Active Substance: CYANOCOBALAMIN
     Indication: PRODUCT USED FOR UNKNOWN INDICATION
     Dosage: ONCE DAILY;  FORMULATION: TABLET;
     Route: 048
  8. JARDIANCE [Suspect]
     Active Substance: EMPAGLIFLOZIN
     Indication: TYPE 2 DIABETES MELLITUS
     Dosage: ONCE DAILY;  FORM STRENGTH: 10 MG; ACTION(S) TAKEN WITH PRODUCT: DOSE NOT CHANGED
     Route: 048
     Dates: start: 20171002
  9. COENZYME Q10 [Concomitant]
     Active Substance: UBIDECARENONE
     Indication: PRODUCT USED FOR UNKNOWN INDICATION
     Dosage: ONCE DAILY;  FORMULATION: TABLET;
     Route: 048
  10. METOPROLOL. [Concomitant]
     Active Substance: METOPROLOL
     Indication: PRODUCT USED FOR UNKNOWN INDICATION
     Dosage: ONCE DAILY;  FORM STRENGTH: 25MG; FORMULATION: TABLET
     Route: 048

REACTIONS (1)
  - Fatigue [Not Recovered/Not Resolved]

NARRATIVE: CASE EVENT DATE: 20171002
